FAERS Safety Report 21573048 (Version 3)
Quarter: 2023Q4

REPORT INFORMATION
  Report Type: Spontaneous
  Country: CA (occurrence: CA)
  Receive Date: 20221109
  Receipt Date: 20231122
  Transmission Date: 20240110
  Serious: Yes (Other)
  Sender: FDA-Public Use
  Company Number: CA-PFIZER INC-202200842961

PATIENT
  Age: 57 Year
  Sex: Female

DRUGS (3)
  1. RUXIENCE [Suspect]
     Active Substance: RITUXIMAB-PVVR
     Indication: Rheumatoid arthritis
     Dosage: 1000 MG, DAY 1 AND DAY 15 EVERY 6 MONTHS
     Route: 042
     Dates: start: 20220602, end: 20220614
  2. RUXIENCE [Suspect]
     Active Substance: RITUXIMAB-PVVR
     Dosage: 1000 MG, DAY 1 AND DAY 15 EVERY 6 MONTHS
     Route: 042
     Dates: start: 20220614
  3. RUXIENCE [Suspect]
     Active Substance: RITUXIMAB-PVVR
     Dosage: 1000 MG (DAY 1 AND 15) DAY 1 (5 MONTHS AFTER LAST TREATMENT) (PRESCRIBED FREQUENCY EVERY 6 MONTHS)
     Route: 042
     Dates: start: 20231114

REACTIONS (6)
  - Fall [Not Recovered/Not Resolved]
  - Joint injury [Not Recovered/Not Resolved]
  - Meniscus injury [Not Recovered/Not Resolved]
  - Off label use [Unknown]
  - Intentional product use issue [Unknown]
  - Inappropriate schedule of product administration [Unknown]

NARRATIVE: CASE EVENT DATE: 20220614
